FAERS Safety Report 10214282 (Version 4)
Quarter: 2016Q1

REPORT INFORMATION
  Report Type: Spontaneous
  Country: US (occurrence: US)
  Receive Date: 20140603
  Receipt Date: 20160311
  Transmission Date: 20160525
  Serious: Yes (Hospitalization)
  Sender: FDA-Public Use
  Company Number: US-PFIZER INC-2014150474

PATIENT
  Age: 68 Year
  Sex: Female
  Weight: 65.76 kg

DRUGS (28)
  1. LYRICA [Suspect]
     Active Substance: PREGABALIN
     Dosage: 150 MG, (TAKING TWO 75MG ORAL CAPSULES TOGETHER 3X/DAY)
     Route: 048
     Dates: start: 2014
  2. ASPIRIN. [Concomitant]
     Active Substance: ASPIRIN
     Dosage: 81 MG, UNK
     Route: 048
     Dates: start: 20130325
  3. VITAMIN D [Concomitant]
     Active Substance: CHOLECALCIFEROL
     Dosage: 2000 IU, UNK
     Route: 048
     Dates: start: 20130325
  4. LYRICA [Suspect]
     Active Substance: PREGABALIN
     Indication: DIABETIC NEUROPATHY
     Dosage: 150 MG, 2X/DAY (BY TAKING TWO 75 MG CAPSULES IN MORNING AND TWO 75 MG CAPSULES AT NIGHT)
     Route: 048
     Dates: end: 201405
  5. CYMBALTA [Concomitant]
     Active Substance: DULOXETINE HYDROCHLORIDE
     Dosage: 120 MG, DAILY,DELAYED RELEASE PARTICLES,TAKE 2 60MGCAPSULE
     Route: 048
     Dates: start: 20130325
  6. DOXAZOSIN [Concomitant]
     Active Substance: DOXAZOSIN\DOXAZOSIN MESYLATE
     Dosage: 2 MG, DAILY 9TAKE ONE TABLET BY MOUTH DAILY)
     Route: 048
     Dates: start: 20130325
  7. LORAZEPAM. [Concomitant]
     Active Substance: LORAZEPAM
     Indication: ANXIETY
     Dosage: 0.5 MG, AS NEEDED (TAKE 1 TABLET TWICE DAILY AS NEEDED)
     Route: 048
     Dates: start: 20130325
  8. OXYCODONE HYDROCHLORIDE. [Concomitant]
     Active Substance: OXYCODONE HYDROCHLORIDE
     Indication: PAIN
     Dosage: 5 MG, AS NEEDED (1-2 TABS EVERY 6 HRS PRN)
     Route: 048
     Dates: start: 20130325
  9. ASACOL [Concomitant]
     Active Substance: MESALAMINE
     Dosage: 800 MG, 3X/DAY
     Route: 048
     Dates: start: 20130325
  10. FOLIC ACID. [Concomitant]
     Active Substance: FOLIC ACID
     Dosage: 5 MG, UNK
     Route: 048
     Dates: start: 20130716
  11. LYRICA [Suspect]
     Active Substance: PREGABALIN
     Dosage: 150 MG, 2X/DAY ((BY TAKING TWO 75MG ORAL CAPSULES TOGETHER)
     Route: 048
     Dates: end: 2014
  12. LYRICA [Suspect]
     Active Substance: PREGABALIN
     Dosage: 150 MG, 3X/DAY ( 75 MG, 2 CAPSULE)
     Route: 048
  13. MOBIC [Concomitant]
     Active Substance: MELOXICAM
     Dosage: UNK
  14. CALCIUM [Concomitant]
     Active Substance: CALCIUM
     Dosage: 600 MG, UNK
     Route: 048
     Dates: start: 20130716
  15. POTASSIUM CHLORIDE. [Concomitant]
     Active Substance: POTASSIUM CHLORIDE
     Dosage: 20 MEQ, DAILY,EXTENDED RELEASE TAKE 2 TABLET DAILY
     Route: 048
     Dates: start: 20140417
  16. LYRICA [Suspect]
     Active Substance: PREGABALIN
     Indication: NEUROPATHY PERIPHERAL
     Dosage: 75 MG, 2X/DAY
     Route: 048
     Dates: start: 20130827
  17. CRESTOR [Concomitant]
     Active Substance: ROSUVASTATIN CALCIUM
     Dosage: 10 MG, DAILY TAKE 0.5 TABLET DAILY
     Route: 048
     Dates: start: 20130516
  18. DIPROLENE AF [Concomitant]
     Active Substance: BETAMETHASONE DIPROPIONATE
     Indication: PRURITUS
     Dosage: UNK, 2X/DAY  (0.05% EXTERNAL CREAM)
     Route: 061
     Dates: start: 20130325
  19. CENTRUM [Concomitant]
     Active Substance: VITAMINS
     Dosage: UNK
     Route: 048
     Dates: start: 20130325
  20. DIPROLENE AF [Concomitant]
     Active Substance: BETAMETHASONE DIPROPIONATE
     Indication: RASH
  21. DICYCLOMINE HYDROCHLORIDE. [Concomitant]
     Active Substance: DICYCLOMINE HYDROCHLORIDE
     Dosage: 20 MG, 3X/DAY,(TAKE 2 10MG CAPSULE 3 TIMES DAILY PRN
     Route: 048
     Dates: start: 20130325
  22. DIPROLENE [Concomitant]
     Active Substance: BETAMETHASONE DIPROPIONATE
     Dosage: UNK
  23. VESICARE [Concomitant]
     Active Substance: SOLIFENACIN SUCCINATE
     Dosage: 10 MG, DAILY (TABLET TAKE CAPSULE DAILY)
     Route: 048
     Dates: start: 20130325
  24. AMOXICILLIN. [Concomitant]
     Active Substance: AMOXICILLIN
     Dosage: 500 MG, TAKE #4 1HR B4 PROCEDURE
     Route: 048
     Dates: start: 20130325
  25. LISINOPRIL. [Concomitant]
     Active Substance: LISINOPRIL
     Dosage: 20 MG, DAILY TAKE 0.5 TABLET
     Route: 048
     Dates: start: 20131115
  26. ASACOL HD [Concomitant]
     Active Substance: MESALAMINE
     Dosage: 800 MG, 3X/DAY
  27. NEXIUM [Concomitant]
     Active Substance: ESOMEPRAZOLE MAGNESIUM
     Dosage: 40 MG, DAILY (TAKE 1 CAPSULE)
     Route: 048
     Dates: start: 20130516
  28. NITROFURANTOIN MONOHYDRATE [Concomitant]
     Active Substance: NITROFURANTOIN MONOHYDRATE
     Dosage: 100 MG, 2X/DAY,TAKE 1 CAPSULE
     Route: 048
     Dates: start: 20140516

REACTIONS (7)
  - Pain in extremity [Unknown]
  - Insomnia [Unknown]
  - Discomfort [Unknown]
  - Renal failure [Unknown]
  - Malaise [Unknown]
  - Renal failure [Unknown]
  - Urinary tract infection [Recovered/Resolved]

NARRATIVE: CASE EVENT DATE: 201404
